FAERS Safety Report 7308200-8 (Version None)
Quarter: 2011Q1

REPORT INFORMATION
  Report Type: 
  Country: None (occurrence: None)
  Receive Date: 20110223
  Receipt Date: 20110218
  Transmission Date: 20110831
  Serious: Yes (Hospitalization)
  Sender: FDA-Public Use
  Company Number: US-BRISTOL-MYERS SQUIBB COMPANY-15558778

PATIENT
  Age: 58 Year
  Sex: Male

DRUGS (8)
  1. ATRIPLA [Suspect]
     Dosage: 1DF=1 UNITS NOS
     Route: 048
     Dates: start: 20090701, end: 20100501
  2. NEURONTIN [Suspect]
     Route: 048
     Dates: end: 20100503
  3. DAFALGAN [Suspect]
     Route: 048
     Dates: start: 20100301, end: 20100428
  4. STABLON [Suspect]
     Dosage: TABS
     Route: 048
     Dates: start: 20090101, end: 20100502
  5. APROVEL [Suspect]
     Route: 048
     Dates: start: 20040101, end: 20100501
  6. ENBREL [Suspect]
     Route: 058
     Dates: start: 20091101, end: 20100429
  7. ZAMUDOL [Suspect]
     Dosage: 200MG BID MAR10-6APR10 200MG QD 07APR10-28APR10
     Route: 048
     Dates: start: 20100301, end: 20100428
  8. METOJECT [Suspect]
     Dosage: INJ 20MG 28SEP09-APR10 15MG 07APR10-19APR10
     Dates: start: 20090929, end: 20100419

REACTIONS (4)
  - BACTERAEMIA [None]
  - PNEUMONIA [None]
  - MUSCULOSKELETAL CHEST PAIN [None]
  - PANCYTOPENIA [None]
